FAERS Safety Report 21127630 (Version 1)
Quarter: 2022Q3

REPORT INFORMATION
  Report Type: Spontaneous
  Country: US (occurrence: US)
  Receive Date: 20220725
  Receipt Date: 20220725
  Transmission Date: 20221026
  Serious: No
  Sender: FDA-Public Use
  Company Number: US-ABBVIE-21K-163-4197337-00

PATIENT

DRUGS (2)
  1. SYNTHROID [Suspect]
     Active Substance: LEVOTHYROXINE SODIUM
     Indication: Product used for unknown indication
     Route: 048
  2. ARMOUR THYROID [Suspect]
     Active Substance: THYROID, PORCINE
     Indication: Product used for unknown indication
     Route: 065

REACTIONS (9)
  - Lethargy [Unknown]
  - Muscular weakness [Unknown]
  - Scoliosis [Unknown]
  - Osteoporosis [Unknown]
  - Goitre [Unknown]
  - Cyst [Unknown]
  - Fatigue [Unknown]
  - Feeling abnormal [Unknown]
  - Gastric disorder [Unknown]
